FAERS Safety Report 8449782-2 (Version None)
Quarter: 2012Q2

REPORT INFORMATION
  Report Type: 
  Country: None (occurrence: None)
  Receive Date: 20120620
  Receipt Date: 20120612
  Transmission Date: 20120825
  Serious: Yes (Hospitalization, Other)
  Sender: FDA-Public Use
  Company Number: US-BAYER-2012-038102

PATIENT
  Age: 19 Year
  Sex: Female
  Weight: 72.562 kg

DRUGS (2)
  1. YASMIN [Suspect]
     Indication: CONTRACEPTION
     Dosage: UNK
     Dates: start: 20041201, end: 20050201
  2. YASMIN [Suspect]
     Indication: ACNE

REACTIONS (10)
  - FEAR OF DEATH [None]
  - SKIN DISCOLOURATION [None]
  - DEPRESSION [None]
  - NERVOUSNESS [None]
  - INJURY [None]
  - EMOTIONAL DISTRESS [None]
  - PAIN IN EXTREMITY [None]
  - DEEP VEIN THROMBOSIS [None]
  - PULMONARY EMBOLISM [None]
  - OEDEMA PERIPHERAL [None]
